FAERS Safety Report 9035968 (Version 1)
Quarter: 2013Q1

REPORT INFORMATION
  Report Type: Report from Study
  Country: US (occurrence: US)
  Receive Date: 20130129
  Receipt Date: 20130129
  Transmission Date: 20140127
  Serious: Yes (Other)
  Sender: FDA-Public Use
  Company Number: US-ABBOTT-12P-163-0917254-00

PATIENT
  Age: 64 Year
  Sex: Female

DRUGS (16)
  1. HUMIRA 40 MG/0.8 ML PEN [Suspect]
     Indication: RHEUMATOID ARTHRITIS
     Dates: start: 2004, end: 2006
  2. VERAPAMIL [Concomitant]
     Indication: HYPERTENSION
  3. GLUCOTROL XL [Concomitant]
     Indication: DIABETES MELLITUS
     Dosage: 10MG DAILY
  4. RANITIDINE [Concomitant]
     Indication: DYSPEPSIA
     Dosage: 300MG DAILY
  5. PRILOSEC [Concomitant]
     Indication: DYSPEPSIA
     Dosage: 40MG DAILY
  6. GABAPENTIN [Concomitant]
     Indication: PAIN
  7. FOLIC ACID [Concomitant]
     Indication: PRODUCT USED FOR UNKNOWN INDICATION
     Dosage: DAILY
  8. AMBIEN [Concomitant]
     Indication: INSOMNIA
     Dosage: 10MG AT NIGHT
  9. AMBIEN [Concomitant]
     Indication: PAIN
  10. CELEXA [Concomitant]
     Indication: PRODUCT USED FOR UNKNOWN INDICATION
     Dosage: 40MG DAILY
  11. ALDACTONE [Concomitant]
     Indication: PRODUCT USED FOR UNKNOWN INDICATION
     Dosage: 25MG DAILY
  12. LASIX [Concomitant]
     Indication: PRODUCT USED FOR UNKNOWN INDICATION
     Dosage: 20MG DAILY
  13. KOMBIGLYZE XR [Concomitant]
     Indication: DIABETES MELLITUS
     Dosage: 5/1000 DAILY
  14. ZETIA [Concomitant]
     Indication: BLOOD CHOLESTEROL INCREASED
     Dosage: 10MG DAILY
  15. ACYCLOVIR [Concomitant]
     Indication: HERPES VIRUS INFECTION
     Dosage: 500MG DAILY
  16. LUMIGAN [Concomitant]
     Indication: GLAUCOMA
     Dosage: 1 DROP EACH EYE DAILY

REACTIONS (7)
  - Spinal fusion surgery [Not Recovered/Not Resolved]
  - Cataract operation [Unknown]
  - Arthralgia [Unknown]
  - Knee arthroplasty [Unknown]
  - Cardiac murmur [Unknown]
  - Venous insufficiency [Unknown]
  - Nasopharyngitis [Unknown]
